FAERS Safety Report 9538987 (Version 1)
Quarter: 2013Q3

REPORT INFORMATION
  Report Type: Spontaneous
  Country: FR (occurrence: FR)
  Receive Date: 20130920
  Receipt Date: 20130920
  Transmission Date: 20140515
  Serious: Yes (Other)
  Sender: FDA-Public Use
  Company Number: PHHY2013FR104423

PATIENT
  Age: 60 Year
  Sex: Female

DRUGS (2)
  1. ACLASTA [Suspect]
     Dosage: 5 MG, (1 IN 1 CYCLE)
     Route: 042
     Dates: start: 20101024
  2. ACLASTA [Suspect]
     Dosage: 5 MG, 1 IN 1 CYCLE
     Route: 042
     Dates: start: 20120116

REACTIONS (3)
  - Eyelid oedema [Recovered/Resolved]
  - Dyshidrotic eczema [Recovered/Resolved]
  - Erythema [Recovered/Resolved]
